FAERS Safety Report 15116259 (Version 1)
Quarter: 2018Q3

REPORT INFORMATION
  Report Type: Spontaneous
  Country: IL (occurrence: IL)
  Receive Date: 20180706
  Receipt Date: 20180706
  Transmission Date: 20181010
  Serious: Yes (Other)
  Sender: FDA-Public Use
  Company Number: IL-UCBSA-2018028707

PATIENT
  Sex: Male

DRUGS (3)
  1. VIMPAT [Suspect]
     Active Substance: LACOSAMIDE
     Indication: PARTIAL SEIZURES
     Dosage: 200 MG, 2X/DAY (BID)
     Dates: start: 2016
  2. FRISIUM [Concomitant]
     Active Substance: CLOBAZAM
  3. COUMADIN [Concomitant]
     Active Substance: WARFARIN SODIUM
     Indication: HYPERCOAGULATION

REACTIONS (3)
  - Arterial occlusive disease [Unknown]
  - Hypercoagulation [Not Recovered/Not Resolved]
  - Renal failure [Not Recovered/Not Resolved]
